FAERS Safety Report 8375771-2 (Version None)
Quarter: 2012Q2

REPORT INFORMATION
  Report Type: 
  Country: None (occurrence: None)
  Receive Date: 20120518
  Receipt Date: 20120518
  Transmission Date: 20120825
  Serious: Yes (Life-Threatening, Other)
  Sender: FDA-Public Use
  Company Number: None

PATIENT
  Age: 58 Year
  Sex: Male
  Weight: 86.1834 kg

DRUGS (1)
  1. ESCITALOPRAM [Suspect]
     Indication: DEPRESSION
     Dosage: 10 MG 1 PER NIGHT PO
     Route: 048
     Dates: start: 20120509, end: 20120512

REACTIONS (7)
  - ABNORMAL DREAMS [None]
  - NERVOUSNESS [None]
  - DRUG INTERACTION [None]
  - PRODUCT SUBSTITUTION ISSUE [None]
  - ANXIETY [None]
  - AGITATION [None]
  - INSOMNIA [None]
